FAERS Safety Report 6662163-7 (Version None)
Quarter: 2010Q1

REPORT INFORMATION
  Report Type: 
  Country: None (occurrence: None)
  Receive Date: 20100331
  Receipt Date: 20100317
  Transmission Date: 20100710
  Serious: Yes (Hospitalization)
  Sender: FDA-Public Use
  Company Number: US-MYLANLABS-2010S1004483

PATIENT
  Age: 55 Year
  Sex: Female
  Weight: 91 kg

DRUGS (4)
  1. ZIPRASIDONE HCL [Suspect]
     Indication: SUICIDE ATTEMPT
     Dosage: OVERDOSE OF 150 X 40MG CAPSULES
     Route: 048
  2. FLUOXETINE [Suspect]
     Indication: SUICIDE ATTEMPT
     Dosage: ^A FEW^ 20MG CAPSULES
     Route: 048
  3. BENZATROPINE [Suspect]
     Indication: SUICIDE ATTEMPT
     Dosage: ^A FEW^ 1MG TABLETS
     Route: 048
  4. TRAZODONE [Suspect]
     Indication: SUICIDE ATTEMPT
     Route: 048

REACTIONS (2)
  - INTENTIONAL OVERDOSE [None]
  - TORSADE DE POINTES [None]
